FAERS Safety Report 9761581 (Version 2)
Quarter: 2013Q4

REPORT INFORMATION
  Report Type: Spontaneous
  Country: TR (occurrence: TR)
  Receive Date: 20131216
  Receipt Date: 20131216
  Transmission Date: 20140711
  Serious: Yes (Death, Life-Threatening)
  Sender: FDA-Public Use
  Company Number: TR-BAYER-2013-149247

PATIENT
  Age: 58 Year
  Sex: Male
  Weight: 80 kg

DRUGS (1)
  1. REGORAFENIB [Suspect]
     Indication: GASTROINTESTINAL STROMAL TUMOUR
     Dosage: 160 MG, UNK
     Route: 048
     Dates: start: 20130606, end: 20130607

REACTIONS (4)
  - Hypertensive encephalopathy [Recovered/Resolved]
  - Convulsion [Recovered/Resolved]
  - Ileus [Fatal]
  - Gastrointestinal stromal tumour [Fatal]
